FAERS Safety Report 9360432 (Version 1)
Quarter: 2013Q2

REPORT INFORMATION
  Report Type: Report from Study
  Country: CA (occurrence: CA)
  Receive Date: 20130621
  Receipt Date: 20130621
  Transmission Date: 20140414
  Serious: Yes (Other)
  Sender: FDA-Public Use
  Company Number: CA-ROCHE-1239564

PATIENT
  Age: 57 Year
  Sex: Female
  Weight: 82.5 kg

DRUGS (9)
  1. ACTEMRA [Suspect]
     Indication: RHEUMATOID ARTHRITIS
     Route: 042
     Dates: start: 20121221, end: 20130517
  2. ATORVASTATIN [Concomitant]
  3. ACETYLSALICYLIC ACID [Concomitant]
     Route: 065
  4. CLOPIDOGREL [Concomitant]
  5. PANTOPRAZOLE [Concomitant]
  6. LEVOTHYROXINE [Concomitant]
  7. FOLIC ACID [Concomitant]
  8. INSULIN [Concomitant]
  9. COVERSYL [Concomitant]

REACTIONS (4)
  - Pain [Not Recovered/Not Resolved]
  - Influenza like illness [Not Recovered/Not Resolved]
  - Rash pruritic [Recovering/Resolving]
  - Oral herpes [Recovered/Resolved]
